FAERS Safety Report 10286494 (Version 2)
Quarter: 2014Q3

REPORT INFORMATION
  Report Type: Spontaneous
  Country: FR (occurrence: None)
  Receive Date: 20140707
  Receipt Date: 20140723
  Transmission Date: 20150326
  Serious: Yes (Other)
  Sender: FDA-Public Use
  Company Number: NGX_02457_2014

PATIENT
  Age: 86 Year
  Sex: Female

DRUGS (1)
  1. QUTENZA [Suspect]
     Active Substance: CAPSAICIN
     Indication: POST HERPETIC NEURALGIA
     Route: 062
     Dates: start: 20140423, end: 20140423

REACTIONS (12)
  - Application site pain [None]
  - Erythema [None]
  - Incorrect drug administration duration [None]
  - Application site pruritus [None]
  - Eczema infected [None]
  - Herpes zoster [None]
  - Pain [None]
  - Skin lesion [None]
  - Scab [None]
  - Hypersensitivity [None]
  - Pruritus [None]
  - Intentional product misuse [None]

NARRATIVE: CASE EVENT DATE: 201405
